FAERS Safety Report 15862250 (Version 1)
Quarter: 2019Q1

REPORT INFORMATION
  Report Type: Spontaneous
  Country: DE (occurrence: DE)
  Receive Date: 20190124
  Receipt Date: 20190124
  Transmission Date: 20190417
  Serious: Yes (Death, Life-Threatening)
  Sender: FDA-Public Use
  Company Number: DE-AMGEN-DEUSP2019008016

PATIENT
  Age: 67 Year
  Sex: Male
  Weight: 90 kg

DRUGS (1)
  1. XGEVA [Suspect]
     Active Substance: DENOSUMAB
     Indication: PROSTATE CANCER
     Dosage: 120 MG, QMO
     Route: 058
     Dates: start: 201611, end: 201810

REACTIONS (4)
  - Neuroendocrine carcinoma [Fatal]
  - Hepatic failure [Fatal]
  - Recurrent cancer [Fatal]
  - Metastases to liver [Fatal]
